FAERS Safety Report 4599756-7 (Version None)
Quarter: 2005Q1

REPORT INFORMATION
  Report Type: 
  Country: None (occurrence: None)
  Receive Date: 20050303
  Receipt Date: 20050225
  Transmission Date: 20050727
  Serious: Yes (Other)
  Sender: FDA-Public Use
  Company Number: KII-2005-0015332

PATIENT
  Age: 20 Year
  Sex: Male

DRUGS (3)
  1. MORPHINE SULFATE [Suspect]
     Dosage: ORAL
     Route: 048
  2. MUSCLE RELAXANTS [Suspect]
     Dosage: ORAL
     Route: 048
  3. BENZODIAZEPINE DERIVATIVES [Suspect]
     Dosage: ORAL
     Route: 048

REACTIONS (1)
  - LOSS OF CONSCIOUSNESS [None]
